FAERS Safety Report 7640691-5 (Version None)
Quarter: 2011Q3

REPORT INFORMATION
  Report Type: 
  Country: None (occurrence: None)
  Receive Date: 20110728
  Receipt Date: 20110719
  Transmission Date: 20111222
  Serious: Yes (Hospitalization, Other)
  Sender: FDA-Public Use
  Company Number: US-BAYER-2011-009761

PATIENT
  Age: 34 Year
  Sex: Female
  Weight: 68.027 kg

DRUGS (7)
  1. YASMIN [Suspect]
     Indication: CONTRACEPTION
     Dosage: UNK
     Dates: start: 20040701
  2. HYDROCODONE BITARTRATE AND ACETAMINOPHEN [Concomitant]
  3. NEXIUM [Concomitant]
     Dosage: 40 MG, UNK
  4. YAZ [Suspect]
     Indication: CONTRACEPTION
     Dosage: UNK
     Dates: start: 20081201, end: 20090301
  5. CIPROFLOXACIN [Concomitant]
     Dosage: 500 MG, UNK
  6. NITROFURAN MONOHYD [Concomitant]
     Dosage: 100 MG, UNK
  7. ZOLPIDEM [Concomitant]
     Dosage: 10 MG, UNK

REACTIONS (6)
  - EMOTIONAL DISTRESS [None]
  - GALLBLADDER INJURY [None]
  - PAIN [None]
  - MEDICAL DIET [None]
  - CHOLECYSTITIS CHRONIC [None]
  - DYSPEPSIA [None]
